FAERS Safety Report 24434703 (Version 2)
Quarter: 2024Q4

REPORT INFORMATION
  Report Type: Spontaneous
  Country: TR (occurrence: TR)
  Receive Date: 20241014
  Receipt Date: 20241016
  Transmission Date: 20250114
  Serious: Yes (Hospitalization)
  Sender: PFIZER
  Company Number: TR-MLMSERVICE-20241002-PI215485-00246-1

PATIENT
  Age: 16 Year
  Sex: Female

DRUGS (6)
  1. LORAZEPAM [Suspect]
     Active Substance: LORAZEPAM
     Indication: Catatonia
     Dosage: 0.5 MG, 1X/DAY
  2. LORAZEPAM [Suspect]
     Active Substance: LORAZEPAM
     Indication: Psychotic disorder
     Dosage: 3.75 MG, 1X/DAY (DOSE TITRATION)
  3. LORAZEPAM [Suspect]
     Active Substance: LORAZEPAM
     Indication: Acute stress disorder
     Dosage: DOSE REDUCED
  4. OLANZAPINE [Suspect]
     Active Substance: OLANZAPINE
     Indication: Catatonia
     Dosage: 5 MG, 1X/DAY
  5. OLANZAPINE [Suspect]
     Active Substance: OLANZAPINE
     Indication: Psychotic disorder
     Dosage: 30 MG, 1X/DAY (DOSE TITRATION)
  6. OLANZAPINE [Suspect]
     Active Substance: OLANZAPINE
     Indication: Acute stress disorder

REACTIONS (1)
  - Extrapyramidal disorder [Unknown]
